FAERS Safety Report 13953698 (Version 1)
Quarter: 2017Q3

REPORT INFORMATION
  Report Type: Spontaneous
  Country: US (occurrence: None)
  Receive Date: 20170908
  Receipt Date: 20170908
  Transmission Date: 20171128
  Serious: Yes (Death)
  Sender: FDA-Public Use
  Company Number: None

PATIENT
  Age: 77 Year
  Sex: Male

DRUGS (11)
  1. K PHOS NEUTRAL [Concomitant]
     Active Substance: POTASSIUM PHOSPHATE, MONOBASIC\SODIUM PHOSPHATE, DIBASIC, ANHYDROUS\SODIUM PHOSPHATE, MONOBASIC, MONOHYDRATE
  2. LOPERAMIDE [Concomitant]
     Active Substance: LOPERAMIDE
  3. SODIUM CITRATE. [Concomitant]
     Active Substance: SODIUM CITRATE
  4. LANTUS [Suspect]
     Active Substance: INSULIN GLARGINE
  5. SODIUM CHLORIDE. [Concomitant]
     Active Substance: SODIUM CHLORIDE
  6. HUMALOG [Suspect]
     Active Substance: INSULIN LISPRO
  7. LOMOTIL [Concomitant]
     Active Substance: ATROPINE SULFATE\DIPHENOXYLATE HYDROCHLORIDE
  8. POTASSIUM CHLORIDE. [Concomitant]
     Active Substance: POTASSIUM CHLORIDE
  9. OPIUM TIN [Concomitant]
  10. OCTREOTIDE 200MCG/ML [Suspect]
     Active Substance: OCTREOTIDE
     Indication: CARCINOID TUMOUR
     Route: 058
     Dates: start: 20170811
  11. NIACIN. [Concomitant]
     Active Substance: NIACIN

REACTIONS (1)
  - Death [None]

NARRATIVE: CASE EVENT DATE: 20170817
